FAERS Safety Report 9620386 (Version 2)
Quarter: 2014Q4

REPORT INFORMATION
  Report Type: Spontaneous
  Country: US (occurrence: US)
  Receive Date: 20131015
  Receipt Date: 20141015
  Transmission Date: 20150529
  Serious: No
  Sender: FDA-Public Use
  Company Number: US-SANOFI-AVENTIS-2013SA093259

PATIENT
  Age: 66 Year
  Sex: Female

DRUGS (3)
  1. AVALIDE [Suspect]
     Active Substance: HYDROCHLOROTHIAZIDE\IRBESARTAN
     Indication: BLOOD PRESSURE
     Dosage: DOSE: 150 MG/ 12.5MG
     Route: 048
     Dates: start: 201305
  2. IRBESARTAN + HCTZ [Suspect]
     Active Substance: HYDROCHLOROTHIAZIDE\IRBESARTAN
     Indication: BLOOD PRESSURE
     Dosage: DOSE: 150 MG/ 12.5MG
     Route: 048
  3. AVALIDE [Suspect]
     Active Substance: HYDROCHLOROTHIAZIDE\IRBESARTAN
     Indication: BLOOD PRESSURE
     Dosage: DOSE: 150 MG/ 12.5MG
     Route: 048

REACTIONS (5)
  - Depression [Recovered/Resolved]
  - Product substitution issue [Unknown]
  - Nonspecific reaction [Recovered/Resolved]
  - Drug hypersensitivity [Recovered/Resolved]
  - Head discomfort [Recovered/Resolved]
